FAERS Safety Report 21666077 (Version 1)
Quarter: 2022Q4

REPORT INFORMATION
  Report Type: Spontaneous
  Country: JP (occurrence: JP)
  Receive Date: 20221201
  Receipt Date: 20221201
  Transmission Date: 20230113
  Serious: Yes (Other)
  Sender: FDA-Public Use
  Company Number: JP-002147023-NVSJ2022JP101856

PATIENT
  Age: 67 Year
  Sex: Female

DRUGS (4)
  1. IMATINIB [Suspect]
     Active Substance: IMATINIB
     Indication: Chronic myeloid leukaemia
     Dosage: 400 MG, QD
     Route: 048
  2. IMATINIB [Suspect]
     Active Substance: IMATINIB
     Dosage: 600 MG, QD
     Route: 048
  3. NILOTINIB [Suspect]
     Active Substance: NILOTINIB
     Indication: Chronic myeloid leukaemia
     Dosage: 400 MG, BID
     Route: 048
  4. NILOTINIB [Suspect]
     Active Substance: NILOTINIB
     Dosage: 300 MG, BID
     Route: 048

REACTIONS (13)
  - Electrocardiogram QT prolonged [Unknown]
  - Nausea [Unknown]
  - Oedema [Unknown]
  - Head discomfort [Unknown]
  - Rash [Unknown]
  - Platelet count decreased [Unknown]
  - Cytogenetic abnormality [Unknown]
  - Malaise [Unknown]
  - Pain in extremity [Unknown]
  - Spondylolisthesis [Unknown]
  - Muscle strain [Unknown]
  - Motor dysfunction [Unknown]
  - Drug intolerance [Unknown]
